FAERS Safety Report 11259063 (Version 1)
Quarter: 2015Q3

REPORT INFORMATION
  Report Type: Spontaneous
  Country: US (occurrence: None)
  Receive Date: 20150709
  Receipt Date: 20150709
  Transmission Date: 20151125
  Serious: No
  Sender: FDA-Public Use
  Company Number: None

PATIENT
  Age: 60 Year
  Sex: Male

DRUGS (2)
  1. LEVETIRACETAM. [Suspect]
     Active Substance: LEVETIRACETAM
  2. LEVETIRACETAM ER [Suspect]
     Active Substance: LEVETIRACETAM

REACTIONS (2)
  - Drug dispensing error [None]
  - Product identification number issue [None]

NARRATIVE: CASE EVENT DATE: 20150706
